FAERS Safety Report 10917883 (Version 1)
Quarter: 2015Q1

REPORT INFORMATION
  Report Type: Spontaneous
  Country: IT (occurrence: IT)
  Receive Date: 20150316
  Receipt Date: 20150316
  Transmission Date: 20150721
  Serious: Yes (Hospitalization)
  Sender: FDA-Public Use
  Company Number: IT-BAYER-2015-034469

PATIENT
  Age: 85 Year
  Sex: Male

DRUGS (3)
  1. CARDIOASPIRIN [Suspect]
     Active Substance: ASPIRIN
     Indication: THROMBOSIS PROPHYLAXIS
     Dosage: DAILY DOSE 100 MG
     Route: 048
     Dates: start: 20140101, end: 20150218
  2. TOTALIP [Concomitant]
     Active Substance: ATORVASTATIN
     Dosage: UNK
     Route: 048
  3. DILZENE [Concomitant]
     Active Substance: DILTIAZEM HYDROCHLORIDE
     Dosage: UNK
     Route: 040

REACTIONS (7)
  - Gastrointestinal haemorrhage [Unknown]
  - Atrial fibrillation [Unknown]
  - Gastric ulcer [Unknown]
  - Melaena [Unknown]
  - Hypotension [Unknown]
  - Haemorrhagic anaemia [Unknown]
  - Dyspnoea [Unknown]

NARRATIVE: CASE EVENT DATE: 20150218
